FAERS Safety Report 19091896 (Version 2)
Quarter: 2021Q2

REPORT INFORMATION
  Report Type: Spontaneous
  Country: DE (occurrence: DE)
  Receive Date: 20210405
  Receipt Date: 20210628
  Transmission Date: 20210717
  Serious: Yes (Death, Life-Threatening, Hospitalization, Other)
  Sender: FDA-Public Use
  Company Number: DE-AUROBINDO-AUR-APL-2021-014405

PATIENT
  Age: 54 Year
  Sex: Female
  Weight: 70 kg

DRUGS (7)
  1. LINEZOLID. [Suspect]
     Active Substance: LINEZOLID
     Indication: OSTEOMYELITIS
     Dosage: 600 MILLIGRAM, TWO TIMES A DAY, 1?0?1
     Route: 048
     Dates: start: 20210128, end: 20210309
  2. MEROPENEM. [Concomitant]
     Active Substance: MEROPENEM
     Indication: DECUBITUS ULCER
     Dosage: UNK
     Route: 065
     Dates: start: 20210309, end: 20210310
  3. CEFTRIAXONE. [Concomitant]
     Active Substance: CEFTRIAXONE
     Indication: PYELONEPHRITIS
     Dosage: UNK
     Route: 065
     Dates: start: 20210103, end: 20210111
  4. MEROPENEM. [Concomitant]
     Active Substance: MEROPENEM
     Indication: NECROTISING FASCIITIS
     Dosage: UNK
     Route: 065
     Dates: start: 20201210, end: 20201220
  5. LINEZOLID. [Suspect]
     Active Substance: LINEZOLID
     Indication: ENTEROCOCCAL INFECTION
  6. CEFTRIAXONE. [Concomitant]
     Active Substance: CEFTRIAXONE
     Indication: URINARY TRACT INFECTION
  7. CLINDAMYCIN. [Concomitant]
     Active Substance: CLINDAMYCIN
     Indication: STAPHYLOCOCCAL BACTERAEMIA
     Dosage: 900 MILLIGRAM, 3 TIMES A DAY, 1?1?1
     Route: 065
     Dates: start: 20210122, end: 20210128

REACTIONS (10)
  - Thrombocytopenia [Fatal]
  - Respiratory failure [Fatal]
  - Lactic acidosis [Fatal]
  - Renal failure [Fatal]
  - Anaemia [Fatal]
  - Oliguria [Fatal]
  - Sepsis [Fatal]
  - Metabolic acidosis [Fatal]
  - Circulatory collapse [Fatal]
  - Multiple organ dysfunction syndrome [Fatal]

NARRATIVE: CASE EVENT DATE: 202103
